FAERS Safety Report 24192815 (Version 8)
Quarter: 2025Q1

REPORT INFORMATION
  Report Type: Spontaneous
  Country: CA (occurrence: CA)
  Receive Date: 20240809
  Receipt Date: 20250319
  Transmission Date: 20250409
  Serious: Yes (Other)
  Sender: CELLTRION
  Company Number: CA-PFIZER INC-202300089789

PATIENT

DRUGS (21)
  1. INFLECTRA [Suspect]
     Active Substance: INFLIXIMAB-DYYB
     Indication: Crohn^s disease
     Route: 042
     Dates: start: 20230214
  2. INFLECTRA [Suspect]
     Active Substance: INFLIXIMAB-DYYB
     Route: 042
     Dates: start: 20230301
  3. INFLECTRA [Suspect]
     Active Substance: INFLIXIMAB-DYYB
     Route: 042
     Dates: start: 20230329
  4. INFLECTRA [Suspect]
     Active Substance: INFLIXIMAB-DYYB
     Route: 042
     Dates: start: 20230524
  5. INFLECTRA [Suspect]
     Active Substance: INFLIXIMAB-DYYB
     Route: 042
     Dates: start: 20230718, end: 20230718
  6. INFLECTRA [Suspect]
     Active Substance: INFLIXIMAB-DYYB
     Route: 042
     Dates: start: 20230913
  7. INFLECTRA [Suspect]
     Active Substance: INFLIXIMAB-DYYB
     Route: 042
     Dates: start: 20231108, end: 20231108
  8. INFLECTRA [Suspect]
     Active Substance: INFLIXIMAB-DYYB
     Route: 042
     Dates: start: 20240228
  9. INFLECTRA [Suspect]
     Active Substance: INFLIXIMAB-DYYB
     Route: 042
     Dates: start: 20240425
  10. INFLECTRA [Suspect]
     Active Substance: INFLIXIMAB-DYYB
     Route: 042
     Dates: start: 20240619
  11. INFLECTRA [Suspect]
     Active Substance: INFLIXIMAB-DYYB
     Route: 042
     Dates: start: 20240731
  12. INFLECTRA [Suspect]
     Active Substance: INFLIXIMAB-DYYB
     Route: 042
     Dates: start: 20240910
  13. INFLECTRA [Suspect]
     Active Substance: INFLIXIMAB-DYYB
     Route: 042
     Dates: start: 20241210
  14. INFLECTRA [Suspect]
     Active Substance: INFLIXIMAB-DYYB
     Route: 042
     Dates: start: 20250129
  15. INFLECTRA [Suspect]
     Active Substance: INFLIXIMAB-DYYB
     Route: 042
     Dates: start: 20250311
  16. IMURAN [Concomitant]
     Active Substance: AZATHIOPRINE
  17. IMURAN [Concomitant]
     Active Substance: AZATHIOPRINE
  18. IMURAN [Concomitant]
     Active Substance: AZATHIOPRINE
  19. LISINOPRIL [Concomitant]
     Active Substance: LISINOPRIL
  20. LISINOPRIL [Concomitant]
     Active Substance: LISINOPRIL
  21. PREDNISONE [Concomitant]
     Active Substance: PREDNISONE

REACTIONS (13)
  - Limb operation [Unknown]
  - Condition aggravated [Not Recovered/Not Resolved]
  - Cough [Recovering/Resolving]
  - Arthralgia [Recovered/Resolved]
  - Blood pressure systolic increased [Unknown]
  - Heart rate decreased [Not Recovered/Not Resolved]
  - Nasopharyngitis [Unknown]
  - Urinary tract infection [Unknown]
  - Back pain [Unknown]
  - Off label use [Unknown]
  - Intentional product use issue [Unknown]
  - Off label use [Unknown]
  - Inappropriate schedule of product administration [Unknown]

NARRATIVE: CASE EVENT DATE: 20230101
